FAERS Safety Report 7129590-5 (Version None)
Quarter: 2010Q4

REPORT INFORMATION
  Report Type: 
  Country: None (occurrence: None)
  Receive Date: 20101130
  Receipt Date: 20101118
  Transmission Date: 20110411
  Serious: Yes (Death)
  Sender: FDA-Public Use
  Company Number: PHHO2008NL15466

PATIENT
  Sex: Female
  Weight: 65 kg

DRUGS (31)
  1. EXELON [Suspect]
     Indication: DELIRIUM
     Dosage: 1.5 MG, BID
     Route: 048
     Dates: start: 20081110, end: 20081112
  2. EXELON [Suspect]
     Dosage: 3 MG, BID
     Route: 048
     Dates: start: 20081113, end: 20081115
  3. EXELON [Suspect]
     Dosage: 4.5 MG, BID
     Route: 048
     Dates: start: 20081116, end: 20081118
  4. EXELON [Suspect]
     Dosage: 6 MG, BID
     Dates: start: 20081119
  5. DOPAMINE [Concomitant]
     Indication: HYPOTENSION
  6. EPINEPHRINE [Concomitant]
     Indication: HYPOTENSION
  7. NOREPINEPHRINE [Concomitant]
     Indication: HYPOTENSION
  8. AMIODARONE HCL [Concomitant]
  9. FUROSEMIDE [Concomitant]
  10. ENALAPRIL [Concomitant]
  11. SPIRONOLACTONE [Concomitant]
  12. SIMVASTATIN [Concomitant]
  13. MIDAZOLAM [Concomitant]
  14. MORPHINE [Concomitant]
  15. LORAZEPAM [Concomitant]
  16. HALDOL [Concomitant]
  17. DALTEPARIN SODIUM [Concomitant]
  18. ACETYLCYSTEINE [Concomitant]
  19. SALBUTAMOL [Concomitant]
  20. CALCIUM CHLORIDE [Concomitant]
  21. INSULIN [Concomitant]
  22. ACETAZOLAMIDE [Concomitant]
  23. ETOMIDATE [Concomitant]
  24. FENTANYL CITRATE [Concomitant]
  25. ROCURONIUM BROMIDE [Concomitant]
  26. CEFOTAXIME SODIUM [Concomitant]
  27. AMPHOTERICIN B [Concomitant]
  28. COLISTIN SULFATE [Concomitant]
  29. MAGNESIUM HYDROXIDE [Concomitant]
  30. OXAZEPAM [Concomitant]
  31. PARACETAMOL [Concomitant]

REACTIONS (7)
  - BRADYCARDIA [None]
  - CARDIAC ARREST [None]
  - CARDIAC FAILURE [None]
  - CARDIAC TAMPONADE [None]
  - HYPOTENSION [None]
  - MYOCARDIAL INFARCTION [None]
  - TACHYCARDIA [None]
